FAERS Safety Report 4776634-1 (Version None)
Quarter: 2005Q3

REPORT INFORMATION
  Report Type: 
  Country: None (occurrence: None)
  Receive Date: 20050923
  Receipt Date: 20050920
  Transmission Date: 20060218
  Serious: Yes (Other)
  Sender: FDA-Public Use
  Company Number: 2005UW13925

PATIENT
  Age: 66 Year
  Sex: Female

DRUGS (11)
  1. ATACAND [Suspect]
     Route: 048
  2. ASPIRIN [Concomitant]
  3. FOLIC ACID [Concomitant]
  4. HYDROCHLOROTHIAZIDE [Concomitant]
  5. LEVOTHYROXINE SODIUM [Concomitant]
  6. LIPITOR [Concomitant]
  7. METFORMIN [Concomitant]
  8. METOPROLOL [Concomitant]
  9. PROCHLORPERAZINE [Concomitant]
  10. PYRIDOXINE HCL [Concomitant]
  11. SENNA [Concomitant]

REACTIONS (3)
  - BLOOD POTASSIUM DECREASED [None]
  - LEUKOCYTOSIS [None]
  - VERTIGO [None]
